FAERS Safety Report 23839399 (Version 2)
Quarter: 2024Q2

REPORT INFORMATION
  Report Type: Spontaneous
  Country: US (occurrence: US)
  Receive Date: 20240510
  Receipt Date: 20240529
  Transmission Date: 20240716
  Serious: Yes (Other)
  Sender: FDA-Public Use
  Company Number: US-BRISTOL-MYERS SQUIBB COMPANY-2024-070781

PATIENT
  Age: 76 Year
  Sex: Female

DRUGS (2)
  1. LENALIDOMIDE [Suspect]
     Active Substance: LENALIDOMIDE
     Indication: 5q minus syndrome
     Route: 048
     Dates: start: 20240426
  2. EPOGEN [Suspect]
     Active Substance: ERYTHROPOIETIN
     Indication: Product used for unknown indication

REACTIONS (7)
  - Glaucoma [Unknown]
  - Fatigue [Unknown]
  - Dizziness [Unknown]
  - Platelet count increased [Unknown]
  - Off label use [Unknown]
  - Product dose omission issue [Unknown]
  - Product prescribing issue [Unknown]
